FAERS Safety Report 14242344 (Version 1)
Quarter: 2017Q4

REPORT INFORMATION
  Report Type: Spontaneous
  Country: US (occurrence: US)
  Receive Date: 20171201
  Receipt Date: 20171201
  Transmission Date: 20180321
  Serious: No
  Sender: FDA-Public Use
  Company Number: US-PFIZER INC-2017442579

PATIENT
  Age: 15 Year
  Sex: Male
  Weight: 50.34 kg

DRUGS (2)
  1. GENOTROPIN [Suspect]
     Active Substance: SOMATROPIN
     Dosage: 3.2 MG, ALTERNATE DAY; 3.0MG ALTERNATING WITH 3.2MG INJECTION; EVERY OTHER DAY
  2. GENOTROPIN [Suspect]
     Active Substance: SOMATROPIN
     Indication: GROWTH HORMONE DEFICIENCY
     Dosage: 3.0 MG, ALTERNATE DAY; 3.0MG ALTERNATING WITH 3.2MG INJECTION; EVERY OTHER DAY

REACTIONS (2)
  - Injection site discomfort [Recovered/Resolved]
  - Device issue [Recovered/Resolved]

NARRATIVE: CASE EVENT DATE: 201709
